FAERS Safety Report 9989135 (Version 2)
Quarter: 2014Q1

REPORT INFORMATION
  Report Type: Report from Study
  Country: PR (occurrence: PR)
  Receive Date: 20140310
  Receipt Date: 20140310
  Transmission Date: 20141002
  Serious: No
  Sender: FDA-Public Use
  Company Number: PR-ABBVIE-13P-131-1078914-00

PATIENT
  Sex: Female
  Weight: 122.58 kg

DRUGS (2)
  1. HUMIRA [Suspect]
     Indication: PSORIATIC ARTHROPATHY
     Route: 058
     Dates: start: 201102, end: 201204
  2. HUMIRA [Suspect]
     Route: 058
     Dates: start: 201305

REACTIONS (1)
  - Nasopharyngitis [Recovered/Resolved]
